FAERS Safety Report 4413547-9 (Version None)
Quarter: 2004Q2

REPORT INFORMATION
  Report Type: 
  Country: None (occurrence: None)
  Receive Date: 20040630
  Receipt Date: 20040309
  Transmission Date: 20050107
  Serious: No
  Sender: FDA-Public Use
  Company Number: 04P-163-0252692-00

PATIENT
  Age: 77 Year
  Sex: Male
  Weight: 88.905 kg

DRUGS (7)
  1. HUMIRA [Suspect]
     Indication: RHEUMATOID ARTHRITIS
     Dosage: 40 MG, 1 IN 2 WK, SUBCUTANEOUS
     Route: 058
     Dates: start: 20030701
  2. PREDNISONE [Concomitant]
  3. DOXAZOSIN MESYLATE [Concomitant]
  4. AVODART [Concomitant]
  5. SERETIDE MITE [Concomitant]
  6. TUSSIONEX ^PENNWALT^ [Concomitant]
  7. ALENDRONATE SODIUM [Concomitant]

REACTIONS (2)
  - CONSTIPATION [None]
  - FLATULENCE [None]
